FAERS Safety Report 15276468 (Version 1)
Quarter: 2018Q3

REPORT INFORMATION
  Report Type: Spontaneous
  Country: US (occurrence: US)
  Receive Date: 20180729
  Receipt Date: 20180729
  Transmission Date: 20181010
  Serious: Yes (Hospitalization, Other)
  Sender: FDA-Public Use
  Company Number: None

PATIENT
  Age: 70 Year
  Sex: Male
  Weight: 82 kg

DRUGS (1)
  1. OLMESARTAN [Suspect]
     Active Substance: OLMESARTAN
     Indication: PRODUCT USED FOR UNKNOWN INDICATION
     Dates: start: 20100729, end: 20180729

REACTIONS (4)
  - Product use issue [None]
  - Back pain [None]
  - Hyperkalaemia [None]
  - Hyponatraemia [None]

NARRATIVE: CASE EVENT DATE: 20180726
